FAERS Safety Report 10365831 (Version 1)
Quarter: 2014Q1

REPORT INFORMATION
  Report Type: Spontaneous
  Country: US (occurrence: None)
  Receive Date: 20140306
  Receipt Date: 20140306
  Transmission Date: 20141002
  Serious: Yes (Hospitalization)
  Sender: FDA-Public Use
  Company Number: 163-21880-13092065

PATIENT
  Age: 77 Year
  Sex: Male
  Weight: 74.84 kg

DRUGS (7)
  1. REVLIMID [Suspect]
     Indication: CHRONIC LEUKAEMIA
     Dosage: 15 MG, 21 IN 28 D, PO
     Route: 048
     Dates: start: 20131017
  2. ALLOPURINOL(ALLOPURINOL)(UNKNOWN) [Concomitant]
  3. VALTREX(VALACICLOVIR HYDROCHLORIDE)(UNKNOWN) [Concomitant]
  4. ATENOLOL(ATENOLOL)(UNKNOWN) [Concomitant]
  5. ASPIRIN(ACETYLSALICYLIC ACID)(UNKNOWN) [Concomitant]
  6. BACTRIM(BACTRIM) (UNKNOWN) [Concomitant]
  7. VITAMIN B-12(CYANOOOBALAMIN)(UNKNOWN) [Concomitant]

REACTIONS (1)
  - Anaemia [None]
